FAERS Safety Report 23736014 (Version 1)
Quarter: 2024Q2

REPORT INFORMATION
  Report Type: Spontaneous
  Country: US (occurrence: US)
  Receive Date: 20240412
  Receipt Date: 20240412
  Transmission Date: 20240716
  Serious: Yes (Life-Threatening, Other)
  Sender: FDA-Public Use
  Company Number: US-002147023-NVSC2021US318210

PATIENT

DRUGS (1)
  1. GLEEVEC [Suspect]
     Active Substance: IMATINIB MESYLATE
     Indication: Gastrointestinal stromal tumour
     Dosage: UNK, (37.5 IS OF SUTENT)
     Route: 065

REACTIONS (4)
  - Feeling abnormal [Unknown]
  - Coma [Unknown]
  - Diabetes mellitus [Unknown]
  - Drug hypersensitivity [Unknown]
